FAERS Safety Report 9719190 (Version 2)
Quarter: 2013Q4

REPORT INFORMATION
  Report Type: Spontaneous
  Country: IT (occurrence: IT)
  Receive Date: 20131127
  Receipt Date: 20131210
  Transmission Date: 20140711
  Serious: Yes (Hospitalization)
  Sender: FDA-Public Use
  Company Number: PHHY2013IT135197

PATIENT
  Age: 87 Year
  Sex: Female

DRUGS (6)
  1. BISOPROLOL [Suspect]
     Indication: HYPERTENSIVE HEART DISEASE
     Dosage: 1.25 MG, QD
     Route: 048
     Dates: start: 20110927, end: 20130716
  2. LANOXIN [Suspect]
     Indication: ATRIAL FIBRILLATION
     Dosage: 0.13 MG, QD
     Route: 048
     Dates: start: 20110101, end: 20130716
  3. COUMADINE [Suspect]
     Dosage: 5 MG, QD
     Route: 048
     Dates: start: 20110703, end: 20130716
  4. PRITOR [Concomitant]
  5. PANTORC [Concomitant]
  6. FUROSEMIDE [Concomitant]

REACTIONS (6)
  - Arrhythmia [Recovered/Resolved]
  - International normalised ratio increased [Recovered/Resolved]
  - Thrombocytopenia [Recovered/Resolved]
  - Toxicity to various agents [Recovered/Resolved]
  - Asthenia [Recovered/Resolved]
  - Bradycardia [Recovered/Resolved]
